FAERS Safety Report 5335616-1 (Version None)
Quarter: 2007Q2

REPORT INFORMATION
  Report Type: 
  Country: None (occurrence: None)
  Receive Date: 20070522
  Receipt Date: 20070515
  Transmission Date: 20071010
  Serious: Yes (Life-Threatening, Other)
  Sender: FDA-Public Use
  Company Number: TPA2007A01006

PATIENT
  Age: 67 Year
  Sex: Male

DRUGS (4)
  1. ROZEREM [Suspect]
     Dosage: PER ORAL
     Route: 048
  2. CYMBALTA [Suspect]
     Indication: DEPRESSION
  3. AMBIEN [Suspect]
  4. LUNESTA [Concomitant]

REACTIONS (2)
  - HOMICIDE [None]
  - SUICIDE ATTEMPT [None]
